FAERS Safety Report 7303623-5 (Version None)
Quarter: 2011Q1

REPORT INFORMATION
  Report Type: 
  Country: None (occurrence: None)
  Receive Date: 20110221
  Receipt Date: 20110211
  Transmission Date: 20110831
  Serious: Yes (Hospitalization)
  Sender: FDA-Public Use
  Company Number: US-AMGEN-USASP2011008529

PATIENT
  Age: 68 Year
  Sex: Female

DRUGS (3)
  1. ARANESP [Suspect]
     Indication: MYELODYSPLASTIC SYNDROME
  2. INFED [Concomitant]
  3. ARANESP [Suspect]
     Dosage: 300 A?G, UNK

REACTIONS (3)
  - HAEMOGLOBIN DECREASED [None]
  - RETROPERITONEAL ABSCESS [None]
  - HOSPITALISATION [None]
